FAERS Safety Report 11896518 (Version 1)
Quarter: 2016Q1

REPORT INFORMATION
  Report Type: Report from Study
  Country: US (occurrence: US)
  Receive Date: 20160107
  Receipt Date: 20160107
  Transmission Date: 20160526
  Serious: Yes (Other)
  Sender: FDA-Public Use
  Company Number: US-GILEAD-2015-0190949

PATIENT
  Age: 57 Year
  Sex: Female

DRUGS (2)
  1. TOPROL XL [Concomitant]
     Active Substance: METOPROLOL SUCCINATE
     Indication: HYPERTENSION
     Dosage: UNK
     Route: 048
     Dates: start: 20151226
  2. LEDIPASVIR/SOFOSBUVIR [Suspect]
     Active Substance: LEDIPASVIR\SOFOSBUVIR
     Indication: CHRONIC HEPATITIS C
     Dosage: 1 DF, UNK
     Route: 048
     Dates: start: 20150601, end: 20151120

REACTIONS (22)
  - Thinking abnormal [Unknown]
  - Vertigo [Unknown]
  - Anger [Unknown]
  - Tinnitus [Unknown]
  - Motor dysfunction [Unknown]
  - Arthralgia [Unknown]
  - Tremor [Unknown]
  - Mental status changes [Unknown]
  - Vomiting [Unknown]
  - Migraine [Unknown]
  - Impaired healing [Unknown]
  - Insomnia [Unknown]
  - Angina pectoris [Unknown]
  - Nervous system disorder [Unknown]
  - Nasal disorder [Unknown]
  - Sinus disorder [Unknown]
  - Weight decreased [Unknown]
  - Micturition urgency [Unknown]
  - Unevaluable event [Unknown]
  - Crying [Unknown]
  - Gait disturbance [Unknown]
  - Activities of daily living impaired [Unknown]

NARRATIVE: CASE EVENT DATE: 2015
